FAERS Safety Report 17650303 (Version 2)
Quarter: 2025Q2

REPORT INFORMATION
  Report Type: Report from Study
  Country: CO (occurrence: CO)
  Receive Date: 20200409
  Receipt Date: 20250409
  Transmission Date: 20250716
  Serious: Yes (Hospitalization, Other)
  Sender: ASTELLAS
  Company Number: CO-ASTELLAS-2020US007703

PATIENT
  Age: 28 Year
  Sex: Male
  Weight: 54 kg

DRUGS (7)
  1. TACROLIMUS [Suspect]
     Active Substance: TACROLIMUS
     Indication: Renal transplant
     Route: 048
     Dates: start: 20190923
  2. TACROLIMUS [Suspect]
     Active Substance: TACROLIMUS
     Indication: Renal transplant
     Route: 048
     Dates: start: 20190923
  3. EVEROLIMUS [Concomitant]
     Active Substance: EVEROLIMUS
     Indication: Renal transplant
     Dosage: 1 MG AT MORNING AND 0.5 MG AT NIGHT, TWICE DAILY?ONGOING
     Route: 048
     Dates: start: 20200214
  4. ESOMEPRAZOLE [Concomitant]
     Active Substance: ESOMEPRAZOLE
     Indication: Gastritis
     Dosage: 1 MG, ONCE DAILY (EVERY 24 HOURS)?ONGOING
     Route: 048
     Dates: start: 20190923
  5. CARVEDILOL [Concomitant]
     Active Substance: CARVEDILOL
     Indication: Product used for unknown indication
     Dosage: 1 MG, ONCE DAILY (EVERY 24 HOURS)?ONGOING
     Route: 048
     Dates: start: 20190923
  6. PREDNISOLONE [Concomitant]
     Active Substance: PREDNISOLONE
     Indication: Product used for unknown indication
     Route: 048
     Dates: start: 20190923
  7. LOSARTAN [Concomitant]
     Active Substance: LOSARTAN
     Indication: Blood pressure abnormal
     Dosage: 25 MG, ONCE DAILY?ONGOING
     Route: 048
     Dates: start: 20190923

REACTIONS (2)
  - Urinary tract infection [Recovered/Resolved]
  - Nephritis [Not Recovered/Not Resolved]

NARRATIVE: CASE EVENT DATE: 20200216
